FAERS Safety Report 4301929-5 (Version None)
Quarter: 2004Q1

REPORT INFORMATION
  Report Type: 
  Country: None (occurrence: None)
  Receive Date: 20040220
  Receipt Date: 20040205
  Transmission Date: 20041129
  Serious: Yes (Hospitalization)
  Sender: FDA-Public Use
  Company Number: S04-GER-00513-01

PATIENT
  Age: 40 Year
  Sex: Male

DRUGS (6)
  1. CIPRAMIL (CITALOPRAM HYDROBROMIDE) [Suspect]
     Indication: DEPRESSION
     Dosage: 60 MG QD PO
     Route: 048
  2. OXCARBAZEPINE [Concomitant]
  3. LAMICTAL [Concomitant]
  4. NERVENDRAGEES-RATIOPHARM [Concomitant]
  5. KEPPA (LEVETIRACETAM) [Concomitant]
  6. VALERIAN/HOPS/PASSION FLOWER EXTRACTIONS [Concomitant]

REACTIONS (2)
  - MICTURITION DISORDER [None]
  - RESIDUAL URINE VOLUME [None]
